FAERS Safety Report 12358171 (Version 1)
Quarter: 2016Q2

REPORT INFORMATION
  Report Type: Spontaneous
  Country: US (occurrence: None)
  Receive Date: 20160511
  Receipt Date: 20160511
  Transmission Date: 20160815
  Serious: No
  Sender: FDA-Public Use
  Company Number: None

PATIENT
  Age: 52 Year
  Sex: Male

DRUGS (1)
  1. IMATINIB 400MG SUN PHARMACEUTICALS [Suspect]
     Active Substance: IMATINIB
     Indication: CHRONIC MYELOID LEUKAEMIA
     Route: 048
     Dates: start: 201605

REACTIONS (6)
  - Depression [None]
  - Drug dose omission [None]
  - Bone pain [None]
  - Pruritus [None]
  - Weight increased [None]
  - Fatigue [None]

NARRATIVE: CASE EVENT DATE: 201605
